FAERS Safety Report 16393628 (Version 3)
Quarter: 2019Q2

REPORT INFORMATION
  Report Type: Spontaneous
  Country: US (occurrence: US)
  Receive Date: 20190605
  Receipt Date: 20190617
  Transmission Date: 20190711
  Serious: No
  Sender: FDA-Public Use
  Company Number: US-PFIZER INC-2018164447

PATIENT
  Age: 39 Year
  Sex: Female
  Weight: 113.4 kg

DRUGS (6)
  1. LYRICA [Suspect]
     Active Substance: PREGABALIN
     Indication: MIGRAINE
  2. LYRICA [Suspect]
     Active Substance: PREGABALIN
     Indication: NEURALGIA
  3. SPIRONOLACTONE. [Concomitant]
     Active Substance: SPIRONOLACTONE
     Indication: INTRACRANIAL PRESSURE INCREASED
     Dosage: 25 MG, 2X/DAY
  4. LYRICA [Suspect]
     Active Substance: PREGABALIN
     Indication: ALLODYNIA
  5. LASIX [Concomitant]
     Active Substance: FUROSEMIDE
     Indication: INTRACRANIAL PRESSURE INCREASED
     Dosage: 20 MG, 1X/DAY
  6. LYRICA [Suspect]
     Active Substance: PREGABALIN
     Indication: CERVICOGENIC HEADACHE
     Dosage: 100 MG, 3X/DAY
     Route: 048
     Dates: start: 201711

REACTIONS (3)
  - Off label use [Unknown]
  - Drug effective for unapproved indication [Unknown]
  - Cerebral disorder [Unknown]
